FAERS Safety Report 4464761-8 (Version None)
Quarter: 2004Q4

REPORT INFORMATION
  Report Type: 
  Country: None (occurrence: None)
  Receive Date: 20041004
  Receipt Date: 20040730
  Transmission Date: 20050328
  Serious: No
  Sender: FDA-Public Use
  Company Number: 377624

PATIENT
  Age: 49 Year
  Sex: Female

DRUGS (4)
  1. COREG [Suspect]
     Dosage: 3.125MG TWICE PER DAY
     Route: 048
     Dates: start: 20030201
  2. AVANDIA [Concomitant]
  3. LISINOPRIL [Concomitant]
  4. LASIX [Concomitant]

REACTIONS (1)
  - FATIGUE [None]
